FAERS Safety Report 4865224-8 (Version None)
Quarter: 2005Q4

REPORT INFORMATION
  Report Type: 
  Country: None (occurrence: None)
  Receive Date: 20051223
  Receipt Date: 20051220
  Transmission Date: 20060501
  Serious: Yes (Hospitalization)
  Sender: FDA-Public Use
  Company Number: FR-GLAXOSMITHKLINE-B0404300A

PATIENT
  Age: 79 Year
  Sex: Female
  Weight: 60 kg

DRUGS (8)
  1. AVANDIA [Suspect]
     Indication: DIABETES MELLITUS NON-INSULIN-DEPENDENT
     Route: 048
     Dates: start: 20050801, end: 20051007
  2. DAONIL [Suspect]
     Indication: DIABETES MELLITUS NON-INSULIN-DEPENDENT
     Dosage: 5MG PER DAY
     Route: 048
     Dates: end: 20051007
  3. ALDACTONE [Concomitant]
     Dosage: 50MG PER DAY
     Route: 048
  4. TENSTATEN [Concomitant]
     Dosage: 50MG TWICE PER DAY
     Route: 048
  5. COVERSYL [Concomitant]
     Dosage: 4MG PER DAY
     Route: 048
  6. MONOTILDIEM [Concomitant]
     Dosage: 300MG PER DAY
     Route: 048
  7. PLAVIX [Concomitant]
     Dosage: 75MG PER DAY
     Route: 048
  8. TAHOR [Concomitant]
     Dosage: 10MG PER DAY

REACTIONS (10)
  - ANOREXIA [None]
  - ASTHENIA [None]
  - BLOOD PRESSURE DECREASED [None]
  - FALL [None]
  - HYPOGLYCAEMIA [None]
  - INFLAMMATION [None]
  - MALAISE [None]
  - PYREXIA [None]
  - URINARY TRACT INFECTION [None]
  - VERTIGO [None]
